FAERS Safety Report 7681592-6 (Version None)
Quarter: 2011Q3

REPORT INFORMATION
  Report Type: 
  Country: None (occurrence: None)
  Receive Date: 20110812
  Receipt Date: 20110804
  Transmission Date: 20111222
  Serious: Yes (Other)
  Sender: FDA-Public Use
  Company Number: PHHY2011CA70698

PATIENT
  Sex: Male

DRUGS (2)
  1. TEGRETOL-XR [Suspect]
     Dosage: 400 MG, TID
     Route: 048
  2. TEGRETOL-XR [Suspect]
     Dosage: 400 MG, BID
     Route: 048

REACTIONS (3)
  - EPILEPSY [None]
  - INCORRECT DOSE ADMINISTERED [None]
  - SOMNOLENCE [None]
